FAERS Safety Report 11338262 (Version 1)
Quarter: 2015Q3

REPORT INFORMATION
  Report Type: Spontaneous
  Country: US (occurrence: US)
  Receive Date: 20150803
  Receipt Date: 20150803
  Transmission Date: 20151125
  Serious: No
  Sender: FDA-Public Use
  Company Number: US-ELI_LILLY_AND_COMPANY-US201008004706

PATIENT
  Age: 74 Year
  Sex: Female

DRUGS (1)
  1. ZYPREXA [Suspect]
     Active Substance: OLANZAPINE
     Indication: OBSESSIVE-COMPULSIVE DISORDER
     Dosage: 10 MG, DAILY (1/D)

REACTIONS (3)
  - Weight increased [Unknown]
  - Off label use [Not Recovered/Not Resolved]
  - Increased appetite [Recovering/Resolving]
